FAERS Safety Report 11272790 (Version 1)
Quarter: 2015Q3

REPORT INFORMATION
  Report Type: Spontaneous
  Country: GB (occurrence: GB)
  Receive Date: 20150715
  Receipt Date: 20150715
  Transmission Date: 20151125
  Serious: Yes (Hospitalization)
  Sender: FDA-Public Use
  Company Number: GB-ASTRAZENECA-2015SE66458

PATIENT
  Age: 60 Year
  Sex: Female

DRUGS (9)
  1. BUPRENORPHINE. [Suspect]
     Active Substance: BUPRENORPHINE
     Route: 065
  2. MST CONTINUS [Suspect]
     Active Substance: MORPHINE SULFATE
     Indication: FIBROMYALGIA
     Dosage: NON AZ PRODUCT, THREE TIMES A DAY
     Route: 048
  3. MST CONTINUS [Suspect]
     Active Substance: MORPHINE SULFATE
     Indication: BIPOLAR DISORDER
     Dosage: NON AZ PRODUCT, THREE TIMES A DAY
     Route: 048
  4. AMITRIPTYLINE [Suspect]
     Active Substance: AMITRIPTYLINE
     Indication: POSTPARTUM DEPRESSION
     Route: 065
  5. VENLAFAXINE [Suspect]
     Active Substance: VENLAFAXINE HYDROCHLORIDE
     Route: 065
  6. DIAZEPAM. [Suspect]
     Active Substance: DIAZEPAM
     Route: 065
  7. MST CONTINUS [Suspect]
     Active Substance: MORPHINE SULFATE
     Indication: BIPOLAR DISORDER
     Dosage: NON AZ PRODUCT, ORAMORPH
     Route: 065
  8. QUETIAPINE [Suspect]
     Active Substance: QUETIAPINE
     Route: 048
  9. MST CONTINUS [Suspect]
     Active Substance: MORPHINE SULFATE
     Indication: FIBROMYALGIA
     Dosage: NON AZ PRODUCT, ORAMORPH
     Route: 065

REACTIONS (7)
  - Temperature intolerance [Not Recovered/Not Resolved]
  - Paraesthesia [Not Recovered/Not Resolved]
  - Dyspepsia [Not Recovered/Not Resolved]
  - Overdose [Unknown]
  - Adverse drug reaction [Not Recovered/Not Resolved]
  - Dermatitis allergic [Not Recovered/Not Resolved]
  - Palpitations [Not Recovered/Not Resolved]
